FAERS Safety Report 7281898-9 (Version None)
Quarter: 2011Q1

REPORT INFORMATION
  Report Type: 
  Country: None (occurrence: None)
  Receive Date: 20110208
  Receipt Date: 20110126
  Transmission Date: 20110831
  Serious: Yes (Death, Other)
  Sender: FDA-Public Use
  Company Number: GB-MYLANLABS-2011S1001828

PATIENT
  Age: 21 Year
  Sex: Male

DRUGS (3)
  1. DILTIAZEM [Suspect]
     Indication: INTENTIONAL OVERDOSE
  2. ALCOHOL [Suspect]
     Indication: INTENTIONAL OVERDOSE
  3. PROPRANOLOL [Suspect]
     Indication: INTENTIONAL OVERDOSE

REACTIONS (7)
  - PUPIL FIXED [None]
  - DEPRESSED LEVEL OF CONSCIOUSNESS [None]
  - SUICIDE ATTEMPT [None]
  - CARDIAC FAILURE ACUTE [None]
  - BLOOD PRESSURE IMMEASURABLE [None]
  - HEART RATE DECREASED [None]
  - INTENTIONAL OVERDOSE [None]
